FAERS Safety Report 15610284 (Version 1)
Quarter: 2018Q4

REPORT INFORMATION
  Report Type: Spontaneous
  Country: US (occurrence: US)
  Receive Date: 20181113
  Receipt Date: 20181113
  Transmission Date: 20190205
  Serious: No
  Sender: FDA-Public Use
  Company Number: US-ROCHE-2072129

PATIENT
  Age: 9 Year
  Sex: Male
  Weight: 34.05 kg

DRUGS (2)
  1. BROMFED (BROMPHENIRAMINE MALEATE, PSEUDOEPHEDRINE HCL, DEXTROMETHORPHA [Concomitant]
     Indication: INFLUENZA
     Dosage: ONGOING: NO
     Route: 065
     Dates: start: 20180202
  2. TAMIFLU [Suspect]
     Active Substance: OSELTAMIVIR PHOSPHATE
     Indication: INFLUENZA
     Route: 048
     Dates: start: 20180202, end: 20180203

REACTIONS (4)
  - Abdominal pain upper [Recovered/Resolved]
  - Dysgeusia [Recovered/Resolved]
  - Vomiting [Recovered/Resolved]
  - Diarrhoea [Recovered/Resolved]

NARRATIVE: CASE EVENT DATE: 20180202
